FAERS Safety Report 5441374-2 (Version None)
Quarter: 2007Q3

REPORT INFORMATION
  Report Type: 
  Country: None (occurrence: None)
  Receive Date: 20070903
  Receipt Date: 20070824
  Transmission Date: 20080115
  Serious: Yes (Other)
  Sender: FDA-Public Use
  Company Number: PHEH2007US04253

PATIENT
  Age: 84 Year
  Sex: Female
  Weight: 63.492 kg

DRUGS (2)
  1. LOTREL [Suspect]
     Indication: HYPERTENSION
     Dosage: 10/20 MG, QD
     Route: 048
     Dates: start: 20050830
  2. PLAVIX [Suspect]
     Dosage: 75 MG, QD
     Route: 048

REACTIONS (1)
  - WEIGHT DECREASED [None]
